FAERS Safety Report 5406949-5 (Version None)
Quarter: 2007Q3

REPORT INFORMATION
  Report Type: 
  Country: None (occurrence: None)
  Receive Date: 20070803
  Receipt Date: 20070803
  Transmission Date: 20080115
  Serious: Yes (Life-Threatening, Disabling)
  Sender: FDA-Public Use
  Company Number: None

PATIENT
  Age: 57 Year
  Sex: Female
  Weight: 53.5244 kg

DRUGS (2)
  1. IBUPROFEN [Suspect]
     Indication: ANTIINFLAMMATORY THERAPY
     Dosage: 1 200MG TAB 2 X DAILY PO
     Route: 048
     Dates: start: 20070715, end: 20070802
  2. IBUPROFEN [Suspect]
     Indication: OSTEOARTHRITIS
     Dosage: 1 200MG TAB 2 X DAILY PO
     Route: 048
     Dates: start: 20070715, end: 20070802

REACTIONS (8)
  - ASTHENIA [None]
  - DIZZINESS [None]
  - FATIGUE [None]
  - MUSCULAR WEAKNESS [None]
  - SOMNOLENCE [None]
  - SYNCOPE [None]
  - TREMOR [None]
  - VISION BLURRED [None]
